FAERS Safety Report 6562837-2 (Version None)
Quarter: 2010Q1

REPORT INFORMATION
  Report Type: 
  Country: None (occurrence: None)
  Receive Date: 20100130
  Receipt Date: 20091123
  Transmission Date: 20100710
  Serious: No
  Sender: FDA-Public Use
  Company Number: US-ABBOTT-09P-163-0610433-00

PATIENT
  Sex: Female
  Weight: 59.02 kg

DRUGS (7)
  1. HUMIRA [Suspect]
     Indication: CROHN'S DISEASE
     Dosage: DAY 1
     Dates: start: 20091120
  2. VITAMIN A [Concomitant]
     Indication: DRUG USE FOR UNKNOWN INDICATION
  3. VITAMIN D [Concomitant]
     Indication: DRUG USE FOR UNKNOWN INDICATION
  4. VITAMIN C [Concomitant]
     Indication: DRUG USE FOR UNKNOWN INDICATION
  5. VITAMIN E [Concomitant]
     Indication: DRUG USE FOR UNKNOWN INDICATION
  6. CALCIUM [Concomitant]
     Indication: DRUG USE FOR UNKNOWN INDICATION
     Dates: start: 20090101
  7. ASACOL [Concomitant]
     Indication: DRUG USE FOR UNKNOWN INDICATION
     Dates: start: 20090101

REACTIONS (8)
  - CHEST DISCOMFORT [None]
  - COUGH [None]
  - HEADACHE [None]
  - HYPOAESTHESIA [None]
  - OROPHARYNGEAL PAIN [None]
  - PARAESTHESIA [None]
  - PHARYNGEAL OEDEMA [None]
  - RHINORRHOEA [None]
